FAERS Safety Report 4808735-3 (Version None)
Quarter: 2005Q4

REPORT INFORMATION
  Report Type: 
  Country: None (occurrence: None)
  Receive Date: 20051021
  Receipt Date: 20051021
  Transmission Date: 20060501
  Serious: Yes (Hospitalization)
  Sender: FDA-Public Use
  Company Number: None

PATIENT
  Age: 65 Year
  Sex: Female
  Weight: 79.3 kg

DRUGS (6)
  1. CELEBREX [Suspect]
     Indication: RHEUMATOID ARTHRITIS
     Dosage: 200 MG PO BID
     Route: 048
     Dates: end: 20051010
  2. DIOVAN HCT [Concomitant]
  3. METHOTREXATE [Concomitant]
  4. PREDNISONE [Concomitant]
  5. FOLIC ACID [Concomitant]
  6. CALCIUM W/ VIT D [Concomitant]

REACTIONS (5)
  - CHEST DISCOMFORT [None]
  - CORONARY ARTERY THROMBOSIS [None]
  - DYSPEPSIA [None]
  - DYSPNOEA [None]
  - HYPERHIDROSIS [None]
